FAERS Safety Report 25979474 (Version 1)
Quarter: 2025Q4

REPORT INFORMATION
  Report Type: Spontaneous
  Country: US (occurrence: US)
  Receive Date: 20251030
  Receipt Date: 20251030
  Transmission Date: 20260118
  Serious: Yes (Other)
  Sender: OTSUKA
  Company Number: US-MMM-Otsuka-18HO24N5

PATIENT
  Age: 72 Year
  Sex: Male
  Weight: 56.25 kg

DRUGS (9)
  1. BREXPIPRAZOLE [Suspect]
     Active Substance: BREXPIPRAZOLE
     Indication: Dementia Alzheimer^s type
     Dosage: UNK
     Route: 065
  2. BREXPIPRAZOLE [Suspect]
     Active Substance: BREXPIPRAZOLE
     Indication: Agitation
  3. METFORMIN [Concomitant]
     Active Substance: METFORMIN HYDROCHLORIDE
     Indication: Diabetes mellitus
     Dosage: UNK (COULD NOT TAKE METFORMIN ANYMORE; TOO STRONG)
     Route: 065
  4. MEMANTINE [Concomitant]
     Active Substance: MEMANTINE
     Indication: Dementia Alzheimer^s type
     Dosage: 5 MG, QD
     Route: 065
  5. DULOXETINE [Concomitant]
     Active Substance: DULOXETINE
     Indication: Depression
     Dosage: 60 MG, QD
     Route: 065
  6. LISINOPRIL [Concomitant]
     Active Substance: LISINOPRIL
     Indication: Blood pressure abnormal
     Dosage: 45 MG
     Route: 065
  7. LISINOPRIL [Concomitant]
     Active Substance: LISINOPRIL
     Dosage: 20 MG
     Route: 065
  8. LEVOTHYROXINE [Concomitant]
     Active Substance: LEVOTHYROXINE
     Indication: Hypothyroidism
     Dosage: 25 ?G
     Route: 065
  9. GLIMEPIRIDE [Concomitant]
     Active Substance: GLIMEPIRIDE
     Indication: Diabetes mellitus
     Dosage: 1 MG
     Route: 065

REACTIONS (6)
  - Presyncope [Unknown]
  - Weight decreased [Unknown]
  - Blood pressure decreased [Unknown]
  - Tremor [Unknown]
  - Product use issue [Unknown]
  - Inability to afford medication [Unknown]

NARRATIVE: CASE EVENT DATE: 20251001
